APPROVED DRUG PRODUCT: ELETRIPTAN HYDROBROMIDE
Active Ingredient: ELETRIPTAN HYDROBROMIDE
Strength: EQ 40MG BASE
Dosage Form/Route: TABLET;ORAL
Application: A209680 | Product #002
Applicant: YUNG SHIN PHARMACEUTICAL INDUSTRIAL CO LTD
Approved: Jul 13, 2020 | RLD: No | RS: No | Type: DISCN